FAERS Safety Report 9601759 (Version 1)
Quarter: 2013Q4

REPORT INFORMATION
  Report Type: Spontaneous
  Country: US (occurrence: None)
  Receive Date: 20131004
  Receipt Date: 20131004
  Transmission Date: 20140711
  Serious: Yes (Other)
  Sender: FDA-Public Use
  Company Number: None

PATIENT
  Age: 42 Year
  Sex: Female
  Weight: 68.04 kg

DRUGS (2)
  1. DESVENLAFAXINE [Suspect]
     Indication: DEPRESSION
     Dosage: ONE PILL
     Route: 048
  2. DESVENLAFAXINE [Suspect]
     Indication: ANXIETY
     Dosage: ONE PILL
     Route: 048

REACTIONS (11)
  - Diarrhoea [None]
  - Depression [None]
  - Mood swings [None]
  - Mania [None]
  - Aggression [None]
  - Hostility [None]
  - Fatigue [None]
  - Pruritus [None]
  - Insomnia [None]
  - Abnormal behaviour [None]
  - Condition aggravated [None]
